FAERS Safety Report 23714902 (Version 1)
Quarter: 2024Q2

REPORT INFORMATION
  Report Type: Report from Study
  Country: FR (occurrence: FR)
  Receive Date: 20240406
  Receipt Date: 20240406
  Transmission Date: 20240716
  Serious: Yes (Death, Other)
  Sender: FDA-Public Use
  Company Number: None

PATIENT
  Age: 27 Year
  Sex: Male

DRUGS (15)
  1. CLONAZEPAM [Suspect]
     Active Substance: CLONAZEPAM
     Indication: Product used for unknown indication
  2. PREGABALIN [Suspect]
     Active Substance: PREGABALIN
     Indication: Product used for unknown indication
     Dosage: UNK
  3. DOXYLAMINE SUCCINATE [Suspect]
     Active Substance: DOXYLAMINE SUCCINATE
     Indication: Product used for unknown indication
  4. LEVAMISOLE [Suspect]
     Active Substance: LEVAMISOLE
     Indication: Product used for unknown indication
  5. METHADONE [Suspect]
     Active Substance: METHADONE HYDROCHLORIDE
     Indication: Product used for unknown indication
  6. BENZOYLECGONINE [Suspect]
     Active Substance: BENZOYLECGONINE
     Indication: Product used for unknown indication
     Dosage: UNK
  7. REMIFENTANIL [Suspect]
     Active Substance: REMIFENTANIL
     Indication: Substance use
     Dosage: UNK
  8. LODENOSINE [Suspect]
     Active Substance: LODENOSINE
     Indication: Substance use
     Dosage: UNK
  9. METHYLTESTOSTERONE [Suspect]
     Active Substance: METHYLTESTOSTERONE
     Indication: Product used for unknown indication
     Dosage: UNK
  10. PROPOFOL [Suspect]
     Active Substance: PROPOFOL
     Indication: Substance use
     Dosage: UNK
  11. METHADONE [Suspect]
     Active Substance: METHADONE HYDROCHLORIDE
     Indication: Substance use
     Dosage: UNK
  12. DOXYLAMINE SUCCINATE [Suspect]
     Active Substance: DOXYLAMINE SUCCINATE
     Indication: Substance use
     Dosage: UNK
  13. PREGABALIN [Suspect]
     Active Substance: PREGABALIN
     Indication: Substance use
     Dosage: UNK
  14. CLONAZEPAM [Suspect]
     Active Substance: CLONAZEPAM
     Indication: Substance use
     Dosage: UNK
  15. LEVAMISOLE [Suspect]
     Active Substance: LEVAMISOLE
     Indication: Substance use
     Dosage: UNK

REACTIONS (4)
  - Intentional product misuse [Fatal]
  - Poisoning [Fatal]
  - Drug level above therapeutic [Fatal]
  - Infection [Fatal]
